FAERS Safety Report 7914103-8 (Version None)
Quarter: 2011Q4

REPORT INFORMATION
  Report Type: 
  Country: None (occurrence: None)
  Receive Date: 20111115
  Receipt Date: 20111107
  Transmission Date: 20120403
  Serious: Yes (Hospitalization, Other)
  Sender: FDA-Public Use
  Company Number: US-SANOFI-AVENTIS-A03200701987

PATIENT
  Age: 56 Year
  Sex: Female
  Weight: 81.64 kg

DRUGS (16)
  1. NORMODYNE [Concomitant]
  2. PLAVIX [Suspect]
     Indication: CARDIOVASCULAR DISORDER
     Dosage: UNIT DOSE: 75 MG
     Route: 048
     Dates: start: 19980101, end: 20051101
  3. TRIAMTERENE AND HYDROCHLOROTHIAZIDE [Concomitant]
  4. PLAVIX [Suspect]
     Route: 048
     Dates: start: 20051112
  5. EXCEDRIN (MIGRAINE) [Concomitant]
     Indication: HEADACHE
  6. PLAVIX [Suspect]
     Dosage: UNIT DOSE: 75 MG
     Route: 048
     Dates: start: 19980101, end: 20051101
  7. PLAVIX [Suspect]
     Route: 048
     Dates: start: 20060505
  8. LODINE XL [Concomitant]
     Indication: PAIN
  9. PLAVIX [Suspect]
     Route: 048
     Dates: start: 20051112
  10. PLAVIX [Suspect]
     Route: 048
     Dates: start: 20060505
  11. PAXIL [Concomitant]
  12. NORVASC [Concomitant]
  13. PREVACID [Concomitant]
  14. CITALOPRAM HYDROBROMIDE [Concomitant]
  15. TRAZODONE HCL [Concomitant]
  16. ATACAND HCT [Concomitant]
     Dosage: 32/254 ONE

REACTIONS (23)
  - NAUSEA [None]
  - HYPOAESTHESIA [None]
  - PARAESTHESIA [None]
  - DIZZINESS [None]
  - GASTRIC ULCER HAEMORRHAGE [None]
  - FALL [None]
  - CERVICOBRACHIAL SYNDROME [None]
  - UPPER GASTROINTESTINAL HAEMORRHAGE [None]
  - HAEMATOCRIT DECREASED [None]
  - DYSPNOEA [None]
  - ANAEMIA [None]
  - MULTIPLE SCLEROSIS [None]
  - TRANSIENT ISCHAEMIC ATTACK [None]
  - CONDITION AGGRAVATED [None]
  - VOMITING [None]
  - SYNCOPE [None]
  - FAECES DISCOLOURED [None]
  - NECK PAIN [None]
  - CARPAL TUNNEL SYNDROME [None]
  - ABDOMINAL PAIN UPPER [None]
  - FATIGUE [None]
  - LABORATORY TEST ABNORMAL [None]
  - CONTUSION [None]
